FAERS Safety Report 5635686-7 (Version None)
Quarter: 2008Q1

REPORT INFORMATION
  Report Type: 
  Country: None (occurrence: None)
  Receive Date: 20080220
  Receipt Date: 20080204
  Transmission Date: 20080703
  Serious: Yes (Other)
  Sender: FDA-Public Use
  Company Number: DSA_31395_2008

PATIENT
  Age: 61 Year
  Sex: Female

DRUGS (4)
  1. ENALAPRIL MALEATE [Suspect]
     Indication: HYPERTENSION
     Dosage: (20MG QD ORAL)
     Route: 048
     Dates: start: 20070821, end: 20071203
  2. BLOPRESID [Concomitant]
  3. EUTIROX /00068001/ [Concomitant]
  4. SIMVASTATIN [Concomitant]

REACTIONS (4)
  - ANGIOEDEMA [None]
  - GLOSSITIS [None]
  - SALIVARY HYPERSECRETION [None]
  - STRAWBERRY TONGUE [None]
